FAERS Safety Report 8827180 (Version 1)
Quarter: 2012Q4

REPORT INFORMATION
  Report Type: 
  Country: US (occurrence: US)
  Receive Date: 20121008
  Receipt Date: 20121008
  Transmission Date: 20130627
  Serious: No
  Sender: FDA-Public Use
  Company Number: US-BIOGENIDEC-2012BI040912

PATIENT
  Sex: Female

DRUGS (1)
  1. AVONEX [Suspect]
     Indication: ACCIDENTAL EXPOSURE TO PRODUCT
     Dates: start: 20120917, end: 20120917

REACTIONS (2)
  - Accidental exposure to product [Recovered/Resolved]
  - Injury associated with device [Recovered/Resolved]
